FAERS Safety Report 20846389 (Version 1)
Quarter: 2022Q2

REPORT INFORMATION
  Report Type: Spontaneous
  Country: US (occurrence: US)
  Receive Date: 20220518
  Receipt Date: 20220518
  Transmission Date: 20220720
  Serious: Yes (Disabling, Other)
  Sender: FDA-Public Use
  Company Number: US-SA-SAC20220516000592

PATIENT
  Sex: Male

DRUGS (3)
  1. AUBAGIO [Suspect]
     Active Substance: TERIFLUNOMIDE
     Indication: Multiple sclerosis
     Dosage: 14 MG, QD
     Route: 048
  2. LATANOPROST [Concomitant]
     Active Substance: LATANOPROST
     Dosage: UNK
  3. TIMOLOL [Concomitant]
     Active Substance: TIMOLOL
     Dosage: UNK

REACTIONS (5)
  - Glaucoma [Not Recovered/Not Resolved]
  - Blindness [Not Recovered/Not Resolved]
  - Walking aid user [Not Recovered/Not Resolved]
  - Memory impairment [Not Recovered/Not Resolved]
  - Hypersomnia [Not Recovered/Not Resolved]
